FAERS Safety Report 16232510 (Version 2)
Quarter: 2019Q2

REPORT INFORMATION
  Report Type: Spontaneous
  Country: US (occurrence: US)
  Receive Date: 20190424
  Receipt Date: 20190605
  Transmission Date: 20190711
  Serious: Yes (Death)
  Sender: FDA-Public Use
  Company Number: US-AKORN PHARMACEUTICALS-2019AKN00754

PATIENT
  Age: 16 Year
  Sex: Female
  Weight: 45.35 kg

DRUGS (4)
  1. NEXPLANON [Concomitant]
     Active Substance: ETONOGESTREL
     Route: 059
  2. UNSPECIFIED BIRTH CONTROL PATCH [Concomitant]
  3. MYORISAN [Suspect]
     Active Substance: ISOTRETINOIN
     Indication: ACNE
     Dosage: 40 MG, 1X/DAY; WITH FOOD
     Route: 048
     Dates: start: 20181018, end: 20190330
  4. UNSPECIFIED ORAL CONTRACEPTIVE [Concomitant]

REACTIONS (9)
  - Scar [Unknown]
  - Pigmentation disorder [Not Recovered/Not Resolved]
  - Cheilitis [Not Recovered/Not Resolved]
  - Xerosis [Not Recovered/Not Resolved]
  - Off label use [Recovered/Resolved]
  - Completed suicide [Fatal]
  - Pyrexia [Recovered/Resolved]
  - Epistaxis [Recovered/Resolved]
  - Lip dry [Not Recovered/Not Resolved]

NARRATIVE: CASE EVENT DATE: 2018
